FAERS Safety Report 8517651-5 (Version None)
Quarter: 2012Q3

REPORT INFORMATION
  Report Type: 
  Country: None (occurrence: None)
  Receive Date: 20120718
  Receipt Date: 20120709
  Transmission Date: 20120928
  Serious: Yes (Other)
  Sender: FDA-Public Use
  Company Number: CA-JNJFOC-20120704358

PATIENT
  Sex: Male
  Weight: 71.2 kg

DRUGS (6)
  1. REMICADE [Suspect]
     Indication: CROHN'S DISEASE
     Route: 042
     Dates: start: 20080225
  2. REMICADE [Suspect]
     Dosage: 30TH INFUSION
     Route: 042
     Dates: start: 20120528
  3. TYLENOL [Concomitant]
     Route: 065
     Dates: start: 20120709
  4. TYLENOL [Concomitant]
     Route: 065
     Dates: start: 20120528
  5. REMICADE [Suspect]
     Route: 042
     Dates: start: 20120709
  6. TYLENOL [Concomitant]
     Indication: PREMEDICATION
     Route: 065
     Dates: start: 20080225

REACTIONS (6)
  - FISTULA [None]
  - RELAPSING FEVER [None]
  - MALAISE [None]
  - URTICARIA [None]
  - CHILLS [None]
  - TREMOR [None]
